FAERS Safety Report 16845833 (Version 2)
Quarter: 2019Q4

REPORT INFORMATION
  Report Type: Spontaneous
  Country: US (occurrence: US)
  Receive Date: 20190924
  Receipt Date: 20191115
  Transmission Date: 20200122
  Serious: Yes (Death)
  Sender: FDA-Public Use
  Company Number: US-CATALYST PHARMACEUTICALS, INC-2019CAT00199

PATIENT
  Sex: Male
  Weight: 66.67 kg

DRUGS (5)
  1. FIRDAPSE [Suspect]
     Active Substance: AMIFAMPRIDINE
     Dosage: 20 MG, 4X/DAY
     Route: 048
     Dates: start: 201904, end: 2019
  2. FIRDAPSE [Suspect]
     Active Substance: AMIFAMPRIDINE
     Indication: MYASTHENIC SYNDROME
     Dosage: 2 TABLETS, 4X/DAY
     Dates: start: 2019, end: 2019
  3. PREDNISONE. [Concomitant]
     Active Substance: PREDNISONE
  4. FIRDAPSE [Suspect]
     Active Substance: AMIFAMPRIDINE
     Dosage: 1 TABLET ON OCCASION
     Dates: start: 2019
  5. FIRDAPSE [Suspect]
     Active Substance: AMIFAMPRIDINE
     Dosage: 10 MG, 6X/DAY
     Route: 048
     Dates: start: 2019

REACTIONS (10)
  - Cardiac dysfunction [Fatal]
  - Cold sweat [Not Recovered/Not Resolved]
  - Increased bronchial secretion [Not Recovered/Not Resolved]
  - Myasthenic syndrome [Fatal]
  - Product substitution issue [Not Recovered/Not Resolved]
  - Eructation [Not Recovered/Not Resolved]
  - Respiratory failure [Fatal]
  - Increased upper airway secretion [Not Recovered/Not Resolved]
  - Intentional product use issue [Recovered/Resolved]
  - Feeling cold [Not Recovered/Not Resolved]

NARRATIVE: CASE EVENT DATE: 2019
